FAERS Safety Report 5809061-6 (Version None)
Quarter: 2008Q3

REPORT INFORMATION
  Report Type: 
  Country: None (occurrence: None)
  Receive Date: 20080711
  Receipt Date: 20080711
  Transmission Date: 20090109
  Serious: No
  Sender: FDA-Public Use
  Company Number: None

PATIENT

DRUGS (1)
  1. COPAXONE [Suspect]
     Indication: MULTIPLE SCLEROSIS
     Dosage: 20 MG QD SQ
     Route: 058
     Dates: start: 20070116

REACTIONS (3)
  - HYPOAESTHESIA [None]
  - INJECTION SITE IRRITATION [None]
  - PAIN IN EXTREMITY [None]
